FAERS Safety Report 16109234 (Version 2)
Quarter: 2019Q1

REPORT INFORMATION
  Report Type: Spontaneous
  Country: US (occurrence: US)
  Receive Date: 20190323
  Receipt Date: 20190325
  Transmission Date: 20190418
  Serious: No
  Sender: FDA-Public Use
  Company Number: US-JNJFOC-20190235583

PATIENT
  Sex: Male

DRUGS (3)
  1. TYLENOL EXTRA STRENGTH [Suspect]
     Active Substance: ACETAMINOPHEN
     Indication: ARTHRITIS
     Route: 065
  2. CELEBREX [Concomitant]
     Active Substance: CELECOXIB
     Indication: ARTHRITIS
     Route: 048
     Dates: start: 2015
  3. ADVIL [Concomitant]
     Active Substance: IBUPROFEN
     Indication: ARTHRITIS
     Route: 065

REACTIONS (1)
  - Drug ineffective [Unknown]
